FAERS Safety Report 9088554 (Version 1)
Quarter: 2013Q1

REPORT INFORMATION
  Report Type: Report from Study
  Country: US (occurrence: US)
  Receive Date: 20130130
  Receipt Date: 20130130
  Transmission Date: 20140127
  Serious: No
  Sender: FDA-Public Use
  Company Number: US-ABBOTT-12P-163-0970586-00

PATIENT
  Age: 21 Year
  Sex: Male

DRUGS (5)
  1. HUMIRA [Suspect]
     Indication: RHEUMATOID ARTHRITIS
     Dates: start: 20120721
  2. HUMIRA [Suspect]
     Indication: BEHCET^S SYNDROME
  3. PREDNISONE [Concomitant]
     Indication: RETINAL HAEMORRHAGE
  4. PREDNISONE [Concomitant]
     Indication: RETINAL HAEMORRHAGE
     Route: 047
  5. CALCIUM [Concomitant]

REACTIONS (3)
  - Vision blurred [Not Recovered/Not Resolved]
  - Injection site haemorrhage [Not Recovered/Not Resolved]
  - Incorrect dose administered [Unknown]
